FAERS Safety Report 16505578 (Version 1)
Quarter: 2019Q3

REPORT INFORMATION
  Report Type: Spontaneous
  Country: US (occurrence: US)
  Receive Date: 20190701
  Receipt Date: 20190701
  Transmission Date: 20191004
  Serious: No
  Sender: FDA-Public Use
  Company Number: US-GLAXOSMITHKLINE-US2019114627

PATIENT
  Age: 66 Year
  Sex: Female

DRUGS (3)
  1. NICODERM CQ [Suspect]
     Active Substance: NICOTINE
     Indication: SMOKING CESSATION THERAPY
     Dosage: UNK
  2. NICODERM CQ [Suspect]
     Active Substance: NICOTINE
     Indication: SMOKING CESSATION THERAPY
     Dosage: 21 MG, UNK
     Dates: start: 201906, end: 20190622
  3. NICODERM CQ [Suspect]
     Active Substance: NICOTINE
     Dosage: 21 MG, UNK
     Dates: start: 201906, end: 20190622

REACTIONS (9)
  - Drug ineffective [Unknown]
  - Application site reaction [Unknown]
  - Insomnia [Unknown]
  - Application site pain [Unknown]
  - Application site erythema [Unknown]
  - Application site discolouration [Unknown]
  - Application site rash [Unknown]
  - Application site irritation [Unknown]
  - Application site pruritus [Unknown]
